FAERS Safety Report 6429943-4 (Version None)
Quarter: 2009Q4

REPORT INFORMATION
  Report Type: 
  Country: None (occurrence: None)
  Receive Date: 20091103
  Receipt Date: 20091019
  Transmission Date: 20100525
  Serious: Yes (Hospitalization)
  Sender: FDA-Public Use
  Company Number: 02100-JPN-07-0171

PATIENT
  Age: 74 Year
  Sex: Male
  Weight: 62 kg

DRUGS (10)
  1. PLETAL [Suspect]
     Indication: CEREBRAL INFARCTION
     Dosage: 81 MG, QD, ORAL
     Route: 048
     Dates: start: 20051008
  2. MOHRUS TAPE (KETOPROFEN) TAPE (INCLUDING POULTICE) [Concomitant]
  3. ARTZ DISPO (SODIUM HYALURONATE) INJECTION [Concomitant]
  4. XYLOCAINE (LIDOCAINE HYDROCHLORIDE) INJECTION [Concomitant]
  5. MOBIC [Concomitant]
  6. YAKUBAN (FLURBIPROFEN) TAPE (INCLUDING POULTICE) [Concomitant]
  7. DEPO MEDROL (METHYLPREDNISOLONE ACETATE) INJECTION [Concomitant]
  8. CALSLOT (MANIDIPINE HYDROCHLORIDE) TABLET [Concomitant]
  9. INHIBACE (CILAZAPRIL) TABLET [Concomitant]
  10. VASOMT (TERAZOSIN HYDROCHLORIDE) TABLET [Concomitant]

REACTIONS (3)
  - NAUSEA [None]
  - VERTIGO POSITIONAL [None]
  - VOMITING [None]
